FAERS Safety Report 5938208-6 (Version None)
Quarter: 2008Q4

REPORT INFORMATION
  Report Type: 
  Country: None (occurrence: None)
  Receive Date: 20081031
  Receipt Date: 20081020
  Transmission Date: 20090506
  Serious: Yes (Life-Threatening)
  Sender: FDA-Public Use
  Company Number: GB-PFIZER INC-2008089242

PATIENT
  Age: 21 Year
  Sex: Male

DRUGS (1)
  1. CHAMPIX [Suspect]
     Indication: SMOKING CESSATION THERAPY
     Route: 048
     Dates: start: 20080916, end: 20080924

REACTIONS (3)
  - FEELING ABNORMAL [None]
  - PARAESTHESIA [None]
  - PERSONALITY CHANGE [None]
